FAERS Safety Report 14196726 (Version 1)
Quarter: 2017Q4

REPORT INFORMATION
  Report Type: Spontaneous
  Country: US (occurrence: US)
  Receive Date: 20171116
  Receipt Date: 20171116
  Transmission Date: 20180321
  Serious: No
  Sender: FDA-Public Use
  Company Number: US-GLAXOSMITHKLINE-US2017175113

PATIENT
  Age: 68 Year
  Sex: Male

DRUGS (7)
  1. ZETIA [Concomitant]
     Active Substance: EZETIMIBE
  2. SUMATRIPTAN (SUMATRIPTAN SUCCINATE) SOLUTION FOR INJECTION IN PRE-FILL [Suspect]
     Active Substance: SUMATRIPTAN
     Indication: MIGRAINE
     Dosage: 6 MG, PRN
     Route: 058
  3. ZANAFLEX [Concomitant]
     Active Substance: TIZANIDINE HYDROCHLORIDE
  4. ZOFRAN [Concomitant]
     Active Substance: ONDANSETRON HYDROCHLORIDE
  5. IMITREX [Suspect]
     Active Substance: SUMATRIPTAN SUCCINATE
     Indication: MIGRAINE
     Dosage: 6 MG, PRN
     Route: 058
  6. REPREXAIN [Concomitant]
     Active Substance: HYDROCODONE BITARTRATE\IBUPROFEN
  7. IMITREX [Suspect]
     Active Substance: SUMATRIPTAN SUCCINATE
     Indication: MIGRAINE
     Dosage: 100 MG, PRN
     Route: 048

REACTIONS (16)
  - Muscle contractions involuntary [Recovered/Resolved]
  - Myalgia [Not Recovered/Not Resolved]
  - Fall [Unknown]
  - Muscle strain [Recovered/Resolved]
  - Incorrect route of drug administration [Unknown]
  - Arthropathy [Unknown]
  - Drug effect decreased [Unknown]
  - Injection site pain [Recovered/Resolved]
  - Wrong technique in device usage process [Unknown]
  - Nausea [Unknown]
  - Feeling hot [Recovered/Resolved]
  - Drug ineffective [Unknown]
  - Swelling [Unknown]
  - Product substitution issue [Unknown]
  - Nerve compression [Unknown]
  - Product substitution issue [None]

NARRATIVE: CASE EVENT DATE: 201710
